FAERS Safety Report 5728635-4 (Version None)
Quarter: 2008Q2

REPORT INFORMATION
  Report Type: 
  Country: None (occurrence: None)
  Receive Date: 20080506
  Receipt Date: 20080425
  Transmission Date: 20081010
  Serious: Yes (Life-Threatening, Hospitalization)
  Sender: FDA-Public Use
  Company Number: CH-JNJFOC-20080406379

PATIENT
  Age: 73 Year
  Sex: Male

DRUGS (1)
  1. DURAGESIC-100 [Suspect]
     Indication: PROCEDURAL PAIN
     Route: 062

REACTIONS (4)
  - CONSTIPATION [None]
  - FATIGUE [None]
  - OFF LABEL USE [None]
  - RESPIRATORY DEPRESSION [None]
